FAERS Safety Report 14093103 (Version 3)
Quarter: 2017Q4

REPORT INFORMATION
  Report Type: Report from Study
  Country: US (occurrence: US)
  Receive Date: 20171016
  Receipt Date: 20171110
  Transmission Date: 20180321
  Serious: Yes (Hospitalization, Other)
  Sender: FDA-Public Use
  Company Number: US-GILEAD-2017-0285113

PATIENT
  Age: 18 Year
  Sex: Male
  Weight: 72.9 kg

DRUGS (9)
  1. REMODULIN [Suspect]
     Active Substance: TREPROSTINIL
     Dosage: 10 MG, UNK
     Route: 065
  2. ADCIRCA [Concomitant]
     Active Substance: TADALAFIL
  3. ADCIRCA [Concomitant]
     Active Substance: TADALAFIL
  4. REMODULIN [Suspect]
     Active Substance: TREPROSTINIL
     Indication: PULMONARY HYPERTENSION
     Dosage: 83 NG, Q1SECOND
     Route: 058
     Dates: start: 20150404
  5. ADCIRCA [Concomitant]
     Active Substance: TADALAFIL
     Indication: PULMONARY HYPERTENSION
     Dosage: 40 MG, QD
     Route: 065
     Dates: start: 20150305
  6. AMBRISENTAN [Suspect]
     Active Substance: AMBRISENTAN
     Indication: PULMONARY ARTERIAL HYPERTENSION
     Dosage: 10 MG, QD
     Route: 048
     Dates: start: 20140324
  7. REMODULIN [Suspect]
     Active Substance: TREPROSTINIL
     Dosage: 140 UNK, UNK
     Route: 065
  8. ALDACTONE [Concomitant]
     Active Substance: SPIRONOLACTONE
  9. XARELTO [Concomitant]
     Active Substance: RIVAROXABAN

REACTIONS (10)
  - Unevaluable event [Unknown]
  - Pain in jaw [Not Recovered/Not Resolved]
  - Hypoxia [Recovered/Resolved]
  - Gingival pain [Unknown]
  - Vomiting [Unknown]
  - Malaise [Not Recovered/Not Resolved]
  - Off label use [Recovered/Resolved]
  - Decreased appetite [Not Recovered/Not Resolved]
  - Weight decreased [Not Recovered/Not Resolved]
  - Abdominal discomfort [Not Recovered/Not Resolved]

NARRATIVE: CASE EVENT DATE: 20140324
